FAERS Safety Report 8002857-4 (Version None)
Quarter: 2011Q4

REPORT INFORMATION
  Report Type: 
  Country: None (occurrence: None)
  Receive Date: 20111222
  Receipt Date: 20101220
  Transmission Date: 20120403
  Serious: No
  Sender: FDA-Public Use
  Company Number: US-GLAXOSMITHKLINE-A0900614A

PATIENT
  Age: 76 Year
  Sex: Male

DRUGS (2)
  1. BLOOD PRESSURE MEDICATION [Concomitant]
  2. AVODART [Suspect]
     Indication: PROSTATECTOMY
     Dosage: .5MG PER DAY
     Route: 048
     Dates: start: 20100801

REACTIONS (1)
  - PROSTATIC SPECIFIC ANTIGEN INCREASED [None]
